FAERS Safety Report 8336401-9 (Version None)
Quarter: 2012Q2

REPORT INFORMATION
  Report Type: 
  Country: None (occurrence: None)
  Receive Date: 20120504
  Receipt Date: 20120501
  Transmission Date: 20120825
  Serious: Yes (Death, Other)
  Sender: FDA-Public Use
  Company Number: PHHY2012CA037509

PATIENT
  Sex: Male

DRUGS (5)
  1. LISINOPRIL [Concomitant]
  2. COUMADIN [Concomitant]
  3. LASIX [Concomitant]
  4. METOPROLOL TARTRATE [Concomitant]
  5. ZOLEDRONOC ACID [Suspect]
     Indication: OSTEOPOROSIS
     Route: 042
     Dates: start: 20110728

REACTIONS (6)
  - HAEMORRHAGE [None]
  - BLOOD CREATININE INCREASED [None]
  - INTERNATIONAL NORMALISED RATIO INCREASED [None]
  - CARDIAC ARREST [None]
  - DEATH [None]
  - CARDIAC FAILURE CONGESTIVE [None]
